FAERS Safety Report 7702237-2 (Version None)
Quarter: 2011Q3

REPORT INFORMATION
  Report Type: 
  Country: None (occurrence: None)
  Receive Date: 20110822
  Receipt Date: 20110816
  Transmission Date: 20111222
  Serious: Yes (Other)
  Sender: FDA-Public Use
  Company Number: US-ABBOTT-11P-163-0847864-00

PATIENT
  Age: 67 Year
  Sex: Male

DRUGS (7)
  1. HUMIRA [Suspect]
     Indication: PSORIATIC ARTHROPATHY
     Dates: start: 20080101, end: 20090101
  2. TYLENOL-500 [Concomitant]
     Indication: PAIN
  3. FINASTERIDE [Concomitant]
     Indication: PRODUCT USED FOR UNKNOWN INDICATION
  4. HUMALOG [Concomitant]
     Indication: DIABETES MELLITUS
     Dosage: BEFORE EACH MEAL
  5. LANTUS [Concomitant]
     Indication: DIABETES MELLITUS
     Dosage: BEFORE BED
  6. SIMAVASTATIN [Concomitant]
     Indication: BLOOD CHOLESTEROL INCREASED
  7. LISINOPRIL [Concomitant]
     Indication: HYPERTENSION

REACTIONS (3)
  - NASAL CONGESTION [None]
  - LOCALISED INFECTION [None]
  - INFECTED SKIN ULCER [None]
